FAERS Safety Report 9304453 (Version 1)
Quarter: 2013Q2

REPORT INFORMATION
  Report Type: Report from Study
  Country: KR (occurrence: KR)
  Receive Date: 20130522
  Receipt Date: 20130522
  Transmission Date: 20140414
  Serious: No
  Sender: FDA-Public Use
  Company Number: PHHY2013KR050970

PATIENT
  Age: 43 Year
  Sex: Male

DRUGS (4)
  1. AMN107 [Suspect]
     Indication: CHRONIC MYELOID LEUKAEMIA
     Dosage: 600 MG, QD
     Route: 048
     Dates: start: 20121031
  2. DIOVAN [Concomitant]
     Indication: HYPERTENSION
     Dosage: 160 MG, UNK
  3. SOLONDO [Concomitant]
     Indication: RASH
     Dosage: 20 MG, UNK
     Dates: start: 20130122
  4. XYZAL [Concomitant]
     Dosage: 5 MG, UNK
     Route: 048
     Dates: start: 20130122

REACTIONS (1)
  - Rash [Not Recovered/Not Resolved]
